FAERS Safety Report 5195015-2 (Version None)
Quarter: 2006Q4

REPORT INFORMATION
  Report Type: 
  Country: None (occurrence: None)
  Receive Date: 20061229
  Receipt Date: 20061207
  Transmission Date: 20070319
  Serious: Yes (Other)
  Sender: FDA-Public Use
  Company Number: IE-BRISTOL-MYERS SQUIBB COMPANY-13607338

PATIENT
  Age: 20 Year
  Sex: Male
  Weight: 96 kg

DRUGS (1)
  1. ADCORTYL TAB [Suspect]
     Dosage: ADCORTYL(TRIAMCINOLONE ACETONIDE 10MG/ML)
     Route: 030
     Dates: start: 20061130

REACTIONS (3)
  - DYSPNOEA [None]
  - TACHYCARDIA [None]
  - URTICARIA [None]
